FAERS Safety Report 18134715 (Version 1)
Quarter: 2020Q3

REPORT INFORMATION
  Report Type: Spontaneous
  Country: US (occurrence: US)
  Receive Date: 20200810
  Receipt Date: 20200810
  Transmission Date: 20201103
  Serious: Yes (Hospitalization)
  Sender: FDA-Public Use
  Company Number: None

PATIENT
  Sex: Male

DRUGS (4)
  1. LATANOPROST, SYNTHROID, PROTONIX, SIMVASTATIN, PROSCAR, LOSARTAN HCTZ [Concomitant]
  2. CYCLOBENZAPRINE, FINASTERIDE, FLOMAX, INVOKANA, AMBIEN [Concomitant]
  3. VITAMIN D3, VITAMIN B12 [Concomitant]
  4. HUMIRA [Suspect]
     Active Substance: ADALIMUMAB
     Indication: PSORIATIC ARTHROPATHY
     Dosage: ?          OTHER FREQUENCY:EVERY WEEK;?
     Route: 058
     Dates: start: 20151007

REACTIONS (1)
  - Upper limb fracture [None]
